FAERS Safety Report 25216806 (Version 1)
Quarter: 2025Q2

REPORT INFORMATION
  Report Type: Spontaneous
  Country: US (occurrence: US)
  Receive Date: 20250419
  Receipt Date: 20250419
  Transmission Date: 20250716
  Serious: Yes (Life-Threatening, Hospitalization)
  Sender: ASPIRO PHARMA
  Company Number: US-ASPIRO-ASP2025US01825

PATIENT
  Age: 15 Year
  Sex: Male

DRUGS (3)
  1. LIDOCAINE [Suspect]
     Active Substance: LIDOCAINE
     Indication: Pain
     Route: 065
  2. MEXILETINE [Concomitant]
     Active Substance: MEXILETINE
     Indication: Pain
     Route: 048
  3. KETAMINE [Concomitant]
     Active Substance: KETAMINE
     Indication: Pain
     Route: 065

REACTIONS (1)
  - Autonomic nervous system imbalance [Unknown]
